FAERS Safety Report 14285238 (Version 2)
Quarter: 2018Q1

REPORT INFORMATION
  Report Type: Spontaneous
  Country: RS (occurrence: RS)
  Receive Date: 20171214
  Receipt Date: 20180221
  Transmission Date: 20180509
  Serious: Yes (Hospitalization, Other)
  Sender: FDA-Public Use
  Company Number: RS-SHIRE-RS201733174

PATIENT

DRUGS (1)
  1. ELAPRASE [Suspect]
     Active Substance: IDURSULFASE
     Indication: PRODUCT USED FOR UNKNOWN INDICATION
     Dosage: 0.5 MG/KG, 1X/WEEK
     Route: 042
     Dates: start: 20140801, end: 20171101

REACTIONS (8)
  - Tremor [Unknown]
  - Seizure [Unknown]
  - Condition aggravated [Unknown]
  - Agitation [Unknown]
  - Pneumonia [Unknown]
  - Muscle twitching [Unknown]
  - Irritability [Unknown]
  - Infusion related reaction [Unknown]

NARRATIVE: CASE EVENT DATE: 20170922
